FAERS Safety Report 16087538 (Version 1)
Quarter: 2019Q1

REPORT INFORMATION
  Report Type: Spontaneous
  Country: DE (occurrence: DE)
  Receive Date: 20190319
  Receipt Date: 20190319
  Transmission Date: 20190418
  Serious: Yes (Congenital Anomaly, Other)
  Sender: FDA-Public Use
  Company Number: DE-AUROBINDO-AUR-APL-2019-014253

PATIENT

DRUGS (2)
  1. LEVOTHYROXINE. [Concomitant]
     Active Substance: LEVOTHYROXINE
     Indication: PRODUCT USED FOR UNKNOWN INDICATION
     Dosage: 50 MICROGRAM, DAILY
     Route: 064
     Dates: start: 20171127, end: 20180822
  2. ESCITALOPRAM [Suspect]
     Active Substance: ESCITALOPRAM OXALATE
     Indication: ANXIETY DISORDER
     Dosage: 15 MILLIGRAM, DAILY
     Route: 064
     Dates: start: 20171127, end: 20180822

REACTIONS (4)
  - Retrognathia [Not Recovered/Not Resolved]
  - Foetal exposure during pregnancy [Unknown]
  - Infantile apnoea [Recovered/Resolved]
  - Atrial septal defect [Unknown]

NARRATIVE: CASE EVENT DATE: 20180822
